FAERS Safety Report 5130428-6 (Version None)
Quarter: 2006Q4

REPORT INFORMATION
  Report Type: 
  Country: None (occurrence: None)
  Receive Date: 20061018
  Receipt Date: 20061018
  Transmission Date: 20070319
  Serious: Yes (Other)
  Sender: FDA-Public Use
  Company Number: None

PATIENT
  Age: 69 Year
  Sex: Female

DRUGS (1)
  1. THYROID TAB [Suspect]
     Dosage: 180 MILLIGRAMS

REACTIONS (6)
  - ALOPECIA [None]
  - DRUG INEFFECTIVE [None]
  - DRY SKIN [None]
  - PHARMACEUTICAL PRODUCT COMPLAINT [None]
  - SYNCOPE [None]
  - THYROID FUNCTION TEST ABNORMAL [None]
